FAERS Safety Report 9954590 (Version 2)
Quarter: 2014Q2

REPORT INFORMATION
  Report Type: Spontaneous
  Country: GB (occurrence: GB)
  Receive Date: 20140304
  Receipt Date: 20140522
  Transmission Date: 20141212
  Serious: Yes (Other)
  Sender: FDA-Public Use
  Company Number: PHFR2014GB001884

PATIENT
  Age: 36 Year
  Sex: Female

DRUGS (6)
  1. CLOZARIL [Suspect]
     Indication: SCHIZOPHRENIA
     Dosage: UNK
     Route: 048
     Dates: start: 20140203
  2. ATENOLOL [Concomitant]
     Dosage: UNK
  3. CITALOPRAM [Concomitant]
     Dosage: UNK
  4. RISPERIDONE [Concomitant]
     Dosage: UNK
  5. QUETIAPINE [Concomitant]
     Dosage: UNK
  6. ORAL CONTRACEPTIVE NOS [Concomitant]
     Dosage: UNK

REACTIONS (4)
  - Pulmonary thrombosis [Unknown]
  - Tachycardia [Unknown]
  - Dyspnoea [Unknown]
  - Diabetes mellitus [Unknown]
